FAERS Safety Report 14730590 (Version 1)
Quarter: 2018Q2

REPORT INFORMATION
  Report Type: Report from Study
  Country: DE (occurrence: DE)
  Receive Date: 20180406
  Receipt Date: 20180406
  Transmission Date: 20180711
  Serious: Yes (Hospitalization)
  Sender: FDA-Public Use
  Company Number: PHHO2014DE013079

PATIENT
  Age: 67 Year
  Sex: Male
  Weight: 80 kg

DRUGS (5)
  1. CANDESARTAN. [Concomitant]
     Active Substance: CANDESARTAN
     Indication: HYPERTENSION
     Dosage: 1 DF (16/12.5 MG), QD
     Route: 048
  2. MIANSERIN [Concomitant]
     Active Substance: MIANSERIN
     Indication: DEPRESSION
     Dosage: 30 MG, QD
     Route: 048
  3. TAMSULOSIN [Concomitant]
     Active Substance: TAMSULOSIN
     Indication: BENIGN PROSTATIC HYPERPLASIA
     Dosage: 0.4 MG, QD
     Route: 048
  4. RAMILICH [Concomitant]
     Active Substance: RAMIPRIL
     Indication: HYPERTENSION
     Dosage: 5 MG, QD
     Route: 048
  5. AIN457 [Suspect]
     Active Substance: SECUKINUMAB
     Indication: PSORIASIS
     Dosage: CODE NOT BROKEN
     Route: 058
     Dates: start: 20140610, end: 20140926

REACTIONS (3)
  - General physical health deterioration [Recovered/Resolved]
  - Ocular hypertension [Recovered/Resolved]
  - Diarrhoea [Recovering/Resolving]

NARRATIVE: CASE EVENT DATE: 20140901
